FAERS Safety Report 7814665-5 (Version None)
Quarter: 2011Q4

REPORT INFORMATION
  Report Type: 
  Country: None (occurrence: None)
  Receive Date: 20111014
  Receipt Date: 20111010
  Transmission Date: 20120403
  Serious: Yes (Other)
  Sender: FDA-Public Use
  Company Number: NL-ROCHE-1003350

PATIENT

DRUGS (8)
  1. ALLOPURINOL [Interacting]
     Indication: PRODUCT USED FOR UNKNOWN INDICATION
  2. COUMARIN [Interacting]
     Indication: PRODUCT USED FOR UNKNOWN INDICATION
  3. FILGRASTIM [Interacting]
     Indication: PRODUCT USED FOR UNKNOWN INDICATION
  4. CYCLOPHOSPHAMIDE [Interacting]
     Indication: PRODUCT USED FOR UNKNOWN INDICATION
  5. DEXAMETHASONE [Interacting]
     Indication: PRODUCT USED FOR UNKNOWN INDICATION
  6. XELODA [Interacting]
     Indication: PRODUCT USED FOR UNKNOWN INDICATION
  7. BLEOMYCIN SULFATE [Interacting]
     Indication: PRODUCT USED FOR UNKNOWN INDICATION
  8. NAPROXEN [Suspect]
     Indication: PRODUCT USED FOR UNKNOWN INDICATION

REACTIONS (5)
  - DRUG INTERACTION [None]
  - GASTROINTESTINAL TOXICITY [None]
  - PULMONARY TOXICITY [None]
  - HAEMORRHAGE [None]
  - BONE MARROW FAILURE [None]
